FAERS Safety Report 23326430 (Version 8)
Quarter: 2024Q1

REPORT INFORMATION
  Report Type: Spontaneous
  Country: US (occurrence: US)
  Receive Date: 20231221
  Receipt Date: 20240311
  Transmission Date: 20240409
  Serious: No
  Sender: FDA-Public Use
  Company Number: US-PFIZER INC-PV202300198512

PATIENT
  Age: 14 Year
  Sex: Male
  Weight: 61.23 kg

DRUGS (4)
  1. GENOTROPIN [Suspect]
     Active Substance: SOMATROPIN
     Indication: Short stature
     Dosage: EVERY OTHER DAY, 6 DAYS PER WEEK
     Dates: start: 202203
  2. GENOTROPIN [Suspect]
     Active Substance: SOMATROPIN
     Indication: Growth hormone deficiency
     Dosage: EVERY OTHER DAY, 6 DAYS PER WEEK
     Dates: start: 202203
  3. ANASTROZOLE [Concomitant]
     Active Substance: ANASTROZOLE
     Indication: Hormone therapy
     Dosage: 1 MG, DAILY
     Dates: start: 2021
  4. ANASTROZOLE [Concomitant]
     Active Substance: ANASTROZOLE
     Indication: Oestrogen therapy

REACTIONS (5)
  - Drug dose omission by device [Unknown]
  - Device use error [Unknown]
  - Device breakage [Unknown]
  - Device issue [Unknown]
  - Device leakage [Unknown]

NARRATIVE: CASE EVENT DATE: 20231205
